FAERS Safety Report 11005854 (Version 2)
Quarter: 2016Q2

REPORT INFORMATION
  Report Type: Spontaneous
  Country: US (occurrence: US)
  Receive Date: 20150409
  Receipt Date: 20160415
  Transmission Date: 20160815
  Serious: No
  Sender: FDA-Public Use
  Company Number: US-ALLERGAN-1503219US

PATIENT
  Age: 71 Year
  Sex: Male
  Weight: 79.37 kg

DRUGS (1)
  1. LUMIGAN [Suspect]
     Active Substance: BIMATOPROST
     Indication: GLAUCOMA
     Dosage: ONCE A DAY
     Route: 047

REACTIONS (2)
  - Blepharal pigmentation [Not Recovered/Not Resolved]
  - Eyelash thickening [Not Recovered/Not Resolved]

NARRATIVE: CASE EVENT DATE: 201412
